FAERS Safety Report 7674397-3 (Version None)
Quarter: 2011Q3

REPORT INFORMATION
  Report Type: 
  Country: None (occurrence: None)
  Receive Date: 20110810
  Receipt Date: 20110802
  Transmission Date: 20111222
  Serious: Yes (Death, Hospitalization)
  Sender: FDA-Public Use
  Company Number: FR-ELI_LILLY_AND_COMPANY-FR201108000589

PATIENT
  Sex: Male

DRUGS (2)
  1. ALIMTA [Suspect]
     Dosage: 575 MG, CYCLE 21 DAYS
     Dates: start: 20110331
  2. CISPLATIN [Concomitant]
     Dosage: 75 MG/M2, UNKNOWN

REACTIONS (4)
  - CARDIO-RESPIRATORY ARREST [None]
  - RENAL FAILURE ACUTE [None]
  - GENERAL PHYSICAL HEALTH DETERIORATION [None]
  - STOMATITIS [None]
